FAERS Safety Report 13886891 (Version 1)
Quarter: 2017Q3

REPORT INFORMATION
  Report Type: Report from Study
  Country: VE (occurrence: VE)
  Receive Date: 20170821
  Receipt Date: 20170821
  Transmission Date: 20171127
  Serious: Yes (Hospitalization, Other)
  Sender: FDA-Public Use
  Company Number: PHHY2017VE120993

PATIENT

DRUGS (1)
  1. EXJADE [Suspect]
     Active Substance: DEFERASIROX
     Indication: SPHEROCYTIC ANAEMIA
     Dosage: 500 MG, QD
     Route: 048
     Dates: start: 20150220, end: 201706

REACTIONS (2)
  - Spherocytic anaemia [Unknown]
  - Cerebrovascular accident [Unknown]
